FAERS Safety Report 8407150-3 (Version None)
Quarter: 2012Q2

REPORT INFORMATION
  Report Type: 
  Country: None (occurrence: None)
  Receive Date: 20120529
  Receipt Date: 20070122
  Transmission Date: 20120825
  Serious: Yes (Death)
  Sender: FDA-Public Use
  Company Number: 02100-JPN-06-0654

PATIENT
  Age: 81 Year
  Sex: Male

DRUGS (5)
  1. BUFFERIN [Suspect]
     Indication: CEREBRAL INFARCTION
     Dosage: 81 MG, BID
     Route: 048
  2. LUVOX [Concomitant]
  3. NIVADIL (NILVADIPINE) [Suspect]
  4. ZANTAC [Concomitant]
  5. PLETAL [Suspect]
     Indication: CEREBRAL INFARCTION
     Dosage: 100 MG, BID
     Route: 048

REACTIONS (4)
  - HYPERTENSION [None]
  - COMA [None]
  - CEREBRAL HAEMORRHAGE [None]
  - INTRAVENTRICULAR HAEMORRHAGE [None]
